FAERS Safety Report 8515771-2 (Version None)
Quarter: 2012Q3

REPORT INFORMATION
  Report Type: 
  Country: None (occurrence: None)
  Receive Date: 20120717
  Receipt Date: 20120713
  Transmission Date: 20120928
  Serious: Yes (Death, Hospitalization, Other)
  Sender: FDA-Public Use
  Company Number: JP-B.I. PHARMACEUTICALS,INC./RIDGEFIELD-2012-BP-14400NB

PATIENT
  Sex: Female
  Weight: 42 kg

DRUGS (12)
  1. CISDYNE [Concomitant]
     Dosage: 1500 MG
     Route: 048
     Dates: start: 20120619, end: 20120627
  2. MOTILIUM [Concomitant]
     Dosage: 30 MG
     Route: 048
     Dates: start: 20120619, end: 20120627
  3. SAMSCA [Concomitant]
     Route: 048
     Dates: start: 20120622, end: 20120627
  4. PRADAXA [Suspect]
     Dosage: 32.1429 MG
     Route: 048
     Dates: end: 20120627
  5. ENALAPRIL MALEATE [Concomitant]
     Dosage: 2.5 MG
     Route: 048
     Dates: start: 20120620, end: 20120627
  6. CARVEDILOL [Concomitant]
     Dosage: 5 MG
     Route: 048
     Dates: start: 20120620, end: 20120627
  7. ARGAMATE [Concomitant]
     Dosage: 25 G
     Route: 048
     Dates: start: 20120620, end: 20120627
  8. ALDACTONE [Concomitant]
     Route: 065
  9. MAGLAX [Concomitant]
     Dosage: 2000 MG
     Route: 048
     Dates: start: 20120619, end: 20120627
  10. MERISLON [Concomitant]
     Dosage: 18 MCG
     Route: 048
     Dates: start: 20120619, end: 20120627
  11. LASIX [Concomitant]
     Dosage: 20 MG
     Route: 048
     Dates: start: 20120620, end: 20120627
  12. PRADAXA [Suspect]
     Indication: ATRIAL FIBRILLATION
     Dosage: 110 MG
     Route: 048
     Dates: start: 20120121, end: 20120618

REACTIONS (5)
  - SEPSIS [None]
  - SHOCK HAEMORRHAGIC [None]
  - GASTROINTESTINAL HAEMORRHAGE [None]
  - CARDIAC FAILURE [None]
  - RENAL FAILURE [None]
